FAERS Safety Report 10074650 (Version 2)
Quarter: 2014Q2

REPORT INFORMATION
  Report Type: Spontaneous
  Country: JP (occurrence: JP)
  Receive Date: 20140414
  Receipt Date: 20140416
  Transmission Date: 20141212
  Serious: Yes (Hospitalization, Other)
  Sender: FDA-Public Use
  Company Number: JP-AMGEN INC.-JPNSP2014025778

PATIENT
  Sex: Female

DRUGS (3)
  1. ENBREL [Suspect]
     Indication: RHEUMATOID ARTHRITIS
     Dosage: 50 MG, FREQUENCY UNKNOWN
     Route: 058
     Dates: start: 201008, end: 201210
  2. ENBREL [Suspect]
     Dosage: 50 MG, FREQUENCY UNKNOWN
     Route: 058
     Dates: start: 201211, end: 201312
  3. ENBREL [Suspect]
     Dosage: 25 MG, FREQUENCY UNKNOWN
     Route: 058
     Dates: start: 201401

REACTIONS (1)
  - Colon cancer [Unknown]
